FAERS Safety Report 14481356 (Version 3)
Quarter: 2019Q1

REPORT INFORMATION
  Report Type: Report from Study
  Country: CN (occurrence: CN)
  Receive Date: 20180202
  Receipt Date: 20190115
  Transmission Date: 20190417
  Serious: Yes (Hospitalization)
  Sender: FDA-Public Use
  Company Number: CN-SA-2017SA203665

PATIENT
  Age: 12 Year
  Sex: Male
  Weight: 36.1 kg

DRUGS (4)
  1. POTASSIUM CHLORIDE. [Concomitant]
     Active Substance: POTASSIUM CHLORIDE
     Dosage: 1500 MG, QD
     Route: 048
     Dates: start: 20170616, end: 20171002
  2. AD-VITAMIN [Concomitant]
     Dosage: 1 DF, QD
     Route: 048
     Dates: start: 20170616, end: 20171002
  3. TERIFLUNOMIDE. [Suspect]
     Active Substance: TERIFLUNOMIDE
     Indication: MULTIPLE SCLEROSIS RELAPSE
     Dosage: 1 DF,QD
     Route: 048
     Dates: start: 20170626
  4. PREDNISONE ACETATE [Concomitant]
     Active Substance: PREDNISONE ACETATE
     Dosage: 50 MG, QD
     Route: 048
     Dates: start: 20170619, end: 20171002

REACTIONS (2)
  - Bronchitis [Recovered/Resolved]
  - Tonsillitis [Recovered/Resolved]

NARRATIVE: CASE EVENT DATE: 20171011
